FAERS Safety Report 4944005-0 (Version None)
Quarter: 2006Q1

REPORT INFORMATION
  Report Type: 
  Country: None (occurrence: None)
  Receive Date: 20060310
  Receipt Date: 20060303
  Transmission Date: 20060701
  Serious: Yes (Other)
  Sender: FDA-Public Use
  Company Number: 2006BH002294

PATIENT
  Age: 49 Year
  Sex: Male
  Weight: 107 kg

DRUGS (5)
  1. GAMMAGARD LIQUID [Suspect]
     Indication: GUILLAIN-BARRE SYNDROME
     Dosage: 40 GM, ONCE; IV
     Route: 042
     Dates: start: 20060130, end: 20060130
  2. ATENOLOL [Concomitant]
  3. LISINOPRIL [Concomitant]
  4. PANTOPRAZOLE [Concomitant]
  5. ASPIRIN [Concomitant]

REACTIONS (4)
  - FLUSHING [None]
  - HYPOTENSION [None]
  - INFUSION RELATED REACTION [None]
  - PARAESTHESIA [None]
